FAERS Safety Report 10207489 (Version 1)
Quarter: 2014Q2

REPORT INFORMATION
  Report Type: Spontaneous
  Country: US (occurrence: US)
  Receive Date: 20140530
  Receipt Date: 20140530
  Transmission Date: 20141212
  Serious: No
  Sender: FDA-Public Use
  Company Number: US-GLAXOSMITHKLINE-A1045575A

PATIENT
  Age: 32 Year
  Sex: Female

DRUGS (6)
  1. VENTOLIN [Suspect]
     Indication: ASTHMA
     Dosage: 2PUFF THREE TIMES PER DAY
     Route: 055
     Dates: start: 201308
  2. ZOLOFT [Concomitant]
  3. GABAPENTIN [Concomitant]
  4. SEROQUEL [Concomitant]
  5. NABUMETONE [Concomitant]
  6. SYNTHROID [Concomitant]

REACTIONS (4)
  - Asthma [Recovered/Resolved]
  - Dyspnoea [Unknown]
  - Drug ineffective [Unknown]
  - Product quality issue [Unknown]
